FAERS Safety Report 25785834 (Version 1)
Quarter: 2025Q3

REPORT INFORMATION
  Report Type: Spontaneous
  Country: US (occurrence: None)
  Receive Date: 20250909
  Receipt Date: 20250909
  Transmission Date: 20251021
  Serious: Yes (Death)
  Sender: FDA-CTU
  Company Number: None

PATIENT
  Sex: Female

DRUGS (16)
  1. NOURIANZ [Suspect]
     Active Substance: ISTRADEFYLLINE
     Indication: Parkinson^s disease
     Dosage: 40MG DAILY ORAL
     Dates: start: 2022
  2. RYTARY ER 23.75-95MG CAPSULES [Concomitant]
  3. LATANOPROST 0.005% OPHTH SOLN 2.5ML [Concomitant]
  4. ALLOPURINOL 100MG TABLETS [Concomitant]
  5. ARIPIPRAZOLE [Concomitant]
     Active Substance: ARIPIPRAZOLE
  6. ATENOLOL 25MG TABLETS [Concomitant]
  7. CITALOPRAM 40MG TABLETS [Concomitant]
  8. DIGOXIN 0.125MG TABLETS [Concomitant]
  9. DORZOLAMIDE-TIMOLOL OPHTH SOLN 10ML [Concomitant]
  10. ELIQUIS [Concomitant]
     Active Substance: APIXABAN
  11. FUROSEMIDE [Concomitant]
     Active Substance: FUROSEMIDE
  12. LORAZEPAM 1MG TABLETS [Concomitant]
  13. RESTASIS [Concomitant]
     Active Substance: CYCLOSPORINE
  14. RYTARY ER 61.25-245MG CAPSULES [Concomitant]
  15. TRAZODONE [Concomitant]
     Active Substance: TRAZODONE HYDROCHLORIDE
  16. VITAMIN D2 50,000IU (ERGO) CAP RX [Concomitant]

REACTIONS (1)
  - Death [None]
